FAERS Safety Report 14029531 (Version 2)
Quarter: 2018Q3

REPORT INFORMATION
  Report Type: Report from Study
  Country: US (occurrence: US)
  Receive Date: 20170930
  Receipt Date: 20180929
  Transmission Date: 20181010
  Serious: No
  Sender: FDA-Public Use
  Company Number: US-SA-2017SA144595

PATIENT
  Age: 36 Year
  Sex: Female

DRUGS (2)
  1. TERIFLUNOMIDE [Suspect]
     Active Substance: TERIFLUNOMIDE
     Indication: MULTIPLE SCLEROSIS
     Dosage: 7 MG, QD
     Route: 048
     Dates: start: 20170208, end: 20170727
  2. TERIFLUNOMIDE [Suspect]
     Active Substance: TERIFLUNOMIDE
     Dosage: 14 UNK
     Route: 048

REACTIONS (8)
  - Nasopharyngitis [Unknown]
  - Product use issue [Unknown]
  - Condition aggravated [Recovering/Resolving]
  - Asthma [Recovered/Resolved]
  - Paraesthesia [Recovering/Resolving]
  - Blepharospasm [Recovering/Resolving]
  - Nervous system disorder [Unknown]
  - Memory impairment [Recovering/Resolving]

NARRATIVE: CASE EVENT DATE: 20170728
